FAERS Safety Report 21274477 (Version 1)
Quarter: 2022Q3

REPORT INFORMATION
  Report Type: Spontaneous
  Country: US (occurrence: US)
  Receive Date: 20220831
  Receipt Date: 20220831
  Transmission Date: 20221026
  Serious: Yes (Other)
  Sender: FDA-Public Use
  Company Number: US-AMERICAN REGENT INC-2021002074

PATIENT
  Age: 41 Year
  Sex: Female
  Weight: 115.83 kg

DRUGS (9)
  1. FERRIC CARBOXYMALTOSE [Suspect]
     Active Substance: FERRIC CARBOXYMALTOSE
     Indication: Iron deficiency anaemia
     Dosage: UNK, SINGLE
     Route: 042
     Dates: start: 20210714, end: 20210714
  2. VITAMIN D NOS [Concomitant]
     Active Substance: VITAMIN D NOS
     Indication: Vitamin D deficiency
     Dosage: UNK
     Route: 065
     Dates: end: 202107
  3. VITAMIN D NOS [Concomitant]
     Active Substance: VITAMIN D NOS
     Dosage: UNK, INCREASED
     Route: 065
     Dates: start: 202107
  4. IRON BISGLYCINATE [Concomitant]
     Indication: Iron deficiency anaemia
     Dosage: 25 MILLIGRAM, QD
     Route: 048
     Dates: start: 20210517
  5. CYANOCOBALAMIN [Concomitant]
     Active Substance: CYANOCOBALAMIN
     Indication: Vitamin B12 deficiency
     Dosage: 1 MILLIGRAM
     Route: 030
  6. PROMETRIUM [Concomitant]
     Active Substance: PROGESTERONE
     Indication: Heavy menstrual bleeding
     Dosage: 100 MILLIGRAM CYCLE 12-26
     Route: 048
  7. LIOTHYRONINE SODIUM [Concomitant]
     Active Substance: LIOTHYRONINE SODIUM
     Indication: Hypothyroidism
     Dosage: 5 MICROGRAM
     Route: 048
  8. NP THYROID [Concomitant]
     Active Substance: LEVOTHYROXINE\LIOTHYRONINE
     Indication: Hypothyroidism
     Dosage: 15 MILLIGRAM
     Route: 048
  9. METFORMIN [Concomitant]
     Active Substance: METFORMIN HYDROCHLORIDE
     Indication: Glucose tolerance impaired
     Dosage: 500 MILLIGRAM (2 TABS)
     Route: 048

REACTIONS (4)
  - Blood phosphorus decreased [Recovered/Resolved]
  - Diarrhoea [Recovered/Resolved]
  - Nausea [Recovered/Resolved]
  - Dizziness [Recovered/Resolved]

NARRATIVE: CASE EVENT DATE: 20210715
